FAERS Safety Report 6864678-5 (Version None)
Quarter: 2010Q3

REPORT INFORMATION
  Report Type: 
  Country: None (occurrence: None)
  Receive Date: 20100721
  Receipt Date: 20080325
  Transmission Date: 20110219
  Serious: No
  Sender: FDA-Public Use
  Company Number: US-PFIZER INC-2008029577

PATIENT
  Sex: Male
  Weight: 56.818 kg

DRUGS (5)
  1. CHANTIX [Suspect]
     Indication: SMOKING CESSATION THERAPY
     Dates: start: 20080317
  2. ZANTAC [Concomitant]
     Dates: end: 20080301
  3. PROTONIX [Concomitant]
     Dates: start: 20080318
  4. MOXIFLOXACIN HYDROCHLORIDE [Concomitant]
     Dates: start: 20080318
  5. VITAMINS [Concomitant]

REACTIONS (5)
  - AGGRESSION [None]
  - CRYING [None]
  - MOOD SWINGS [None]
  - NAUSEA [None]
  - VOMITING [None]
